FAERS Safety Report 8016942-4 (Version None)
Quarter: 2012Q1

REPORT INFORMATION
  Report Type: 
  Country: None (occurrence: None)
  Receive Date: 20120102
  Receipt Date: 20111221
  Transmission Date: 20120608
  Serious: Yes (Death, Life-Threatening)
  Sender: FDA-Public Use
  Company Number: JP-NOVOPROD-341818

PATIENT

DRUGS (3)
  1. VICTOZA [Suspect]
     Indication: TYPE 2 DIABETES MELLITUS
     Dosage: 0.3 MG, QD
     Route: 058
     Dates: start: 20111105
  2. AMARYL [Concomitant]
     Dosage: 1 MG, QD
     Route: 048
     Dates: start: 20111203
  3. VICTOZA [Suspect]
     Dosage: 0.9 MG, QD
     Route: 058
     Dates: start: 20111203

REACTIONS (1)
  - PANCREATITIS ACUTE [None]
